FAERS Safety Report 15188626 (Version 2)
Quarter: 2018Q3

REPORT INFORMATION
  Report Type: Spontaneous
  Country: US (occurrence: US)
  Receive Date: 20180724
  Receipt Date: 20180817
  Transmission Date: 20181010
  Serious: No
  Sender: FDA-Public Use
  Company Number: US-PFIZER INC-2018293447

PATIENT
  Age: 56 Year
  Sex: Female
  Weight: 72.57 kg

DRUGS (2)
  1. PREMPRO [Suspect]
     Active Substance: ESTROGENS, CONJUGATED\MEDROXYPROGESTERONE ACETATE
     Indication: VULVOVAGINAL DRYNESS
     Dosage: 1 DF, UNK [ESTROGENS CONJUGATED: 0.45MG/MEDROXYPROGESTERONE: 1.5MG]
  2. VALACICLOVIR [Concomitant]
     Active Substance: VALACYCLOVIR HYDROCHLORIDE
     Indication: SKIN DISORDER
     Dosage: 1 MG, 2X/DAY

REACTIONS (3)
  - Headache [Unknown]
  - Muscle spasms [Unknown]
  - Dysuria [Unknown]
